FAERS Safety Report 20372275 (Version 8)
Quarter: 2022Q1

REPORT INFORMATION
  Report Type: Report from Study
  Country: CH (occurrence: CH)
  Receive Date: 20220124
  Receipt Date: 20220301
  Transmission Date: 20220423
  Serious: Yes (Death, Hospitalization)
  Sender: FDA-Public Use
  Company Number: CH-ABBVIE-22K-151-4244651-00

PATIENT
  Age: 78 Year
  Sex: Male

DRUGS (6)
  1. CARBIDOPA\LEVODOPA [Suspect]
     Active Substance: CARBIDOPA\LEVODOPA
     Indication: Parkinson^s disease
     Dosage: 2 CASETTE A DAY
     Route: 050
     Dates: start: 20200921
  2. CARBIDOPA\LEVODOPA [Suspect]
     Active Substance: CARBIDOPA\LEVODOPA
     Dosage: MD: 3.0 ML, CRD: 4.4 ML/H, CRN: 2.8 ML/H, ED: 1.0 ML
     Route: 050
     Dates: start: 20211010, end: 20211117
  3. CARBIDOPA\LEVODOPA [Suspect]
     Active Substance: CARBIDOPA\LEVODOPA
     Dosage: MD: 3.0 ML, CRD: 4.5 ML/H, CRN: 2.9 ML/H, ED: 1.0 ML
     Route: 050
     Dates: start: 20211117, end: 20211201
  4. CARBIDOPA\LEVODOPA [Suspect]
     Active Substance: CARBIDOPA\LEVODOPA
     Dosage: MD: 3.0 ML, CRD: 4.5 ML/H, CRN: 2.9 ML/H, ED: 1.0 ML
     Route: 050
     Dates: start: 20211201, end: 20220119
  5. CARBIDOPA\LEVODOPA [Suspect]
     Active Substance: CARBIDOPA\LEVODOPA
     Dosage: MD: 3.0 ML, CRD: 4.1 ML/H, CRN: 3.6 ML/H, ED: 1.0 ML
     Route: 050
     Dates: start: 20220119, end: 202202
  6. CARBIDOPA\LEVODOPA [Suspect]
     Active Substance: CARBIDOPA\LEVODOPA
     Route: 050

REACTIONS (11)
  - Death [Fatal]
  - Gastrointestinal inflammation [Unknown]
  - Cardiac pacemaker insertion [Unknown]
  - Epilepsy [Unknown]
  - Tremor [Unknown]
  - Seizure [Unknown]
  - Hypertension [Recovering/Resolving]
  - Vomiting [Unknown]
  - Drug interaction [Unknown]
  - General physical health deterioration [Unknown]
  - Tremor [Unknown]

NARRATIVE: CASE EVENT DATE: 20220218
